FAERS Safety Report 19878570 (Version 2)
Quarter: 2022Q4

REPORT INFORMATION
  Report Type: Spontaneous
  Country: US (occurrence: US)
  Receive Date: 20210924
  Receipt Date: 20221017
  Transmission Date: 20230113
  Serious: No
  Sender: FDA-Public Use
  Company Number: US-CELLTRION INC.-2021US002855

PATIENT

DRUGS (1)
  1. INFLECTRA [Suspect]
     Active Substance: INFLIXIMAB-DYYB
     Indication: Product used for unknown indication
     Dosage: INFUSE INFLECTRA 550MG IN NS (DOSE VOLUME: 250ML) INTRAVENOUSLY AT 20ML/HRX15MIN, 40ML/HRX15MIN, 80M
     Route: 042
     Dates: start: 202005

REACTIONS (2)
  - Symptom recurrence [Unknown]
  - Product dose omission issue [Unknown]
